FAERS Safety Report 4851156-8 (Version None)
Quarter: 2005Q4

REPORT INFORMATION
  Report Type: 
  Country: None (occurrence: None)
  Receive Date: 20051212
  Receipt Date: 20051005
  Transmission Date: 20060501
  Serious: Yes (Hospitalization)
  Sender: FDA-Public Use
  Company Number: JP-BRISTOL-MYERS SQUIBB COMPANY-13136882

PATIENT
  Age: 26 Year
  Sex: Male
  Weight: 36 kg

DRUGS (4)
  1. VIDEX EC [Suspect]
     Indication: HIV INFECTION
     Route: 048
     Dates: start: 20020510, end: 20040317
  2. VIREAD [Suspect]
     Indication: HIV INFECTION
     Route: 048
     Dates: start: 20020510, end: 20040317
  3. KALETRA [Suspect]
     Indication: HIV INFECTION
     Route: 048
     Dates: start: 20020510, end: 20040317
  4. STOCRIN [Concomitant]
     Route: 048
     Dates: start: 20020809, end: 20021031

REACTIONS (2)
  - RENAL IMPAIRMENT [None]
  - RENAL TUBULAR DISORDER [None]
